FAERS Safety Report 22804507 (Version 3)
Quarter: 2024Q4

REPORT INFORMATION
  Report Type: Spontaneous
  Country: US (occurrence: US)
  Receive Date: 20230809
  Receipt Date: 20241129
  Transmission Date: 20250115
  Serious: Yes (Death, Other)
  Sender: AMGEN
  Company Number: US-AMGEN-USASP2023136922

PATIENT

DRUGS (7)
  1. BEVACIZUMAB [Suspect]
     Active Substance: BEVACIZUMAB
     Indication: Hepatocellular carcinoma
     Dosage: UNK
     Route: 065
  2. ATEZOLIZUMAB [Concomitant]
     Active Substance: ATEZOLIZUMAB
     Indication: Hepatocellular carcinoma
     Dosage: UNK
  3. IPILIMUMAB [Concomitant]
     Active Substance: IPILIMUMAB
     Indication: Hepatocellular carcinoma
     Dosage: 3 MILLIGRAM PER KILOGRAM, Q3WK
  4. IPILIMUMAB [Concomitant]
     Active Substance: IPILIMUMAB
     Dosage: 1 MILLIGRAM PER KILOGRAM, Q3WK
  5. NIVOLUMAB [Concomitant]
     Active Substance: NIVOLUMAB
     Indication: Hepatocellular carcinoma
     Dosage: 1 MILLIGRAM PER KILOGRAM, Q3WK
  6. NIVOLUMAB [Concomitant]
     Active Substance: NIVOLUMAB
     Dosage: 3 MILLIGRAM PER KILOGRAM, Q3WK
  7. NIVOLUMAB [Concomitant]
     Active Substance: NIVOLUMAB
     Dosage: 480 MILLIGRAM, Q4WK

REACTIONS (17)
  - Death [Fatal]
  - Autoimmune hepatitis [Fatal]
  - Hepatocellular carcinoma [Unknown]
  - Oesophagitis [Unknown]
  - Colitis [Unknown]
  - Myocarditis [Unknown]
  - Pneumonitis [Unknown]
  - Hypothyroidism [Unknown]
  - Hyperthyroidism [Unknown]
  - Crohn^s disease [Unknown]
  - Therapy partial responder [Unknown]
  - Drug ineffective for unapproved indication [Unknown]
  - Dermatitis [Unknown]
  - Hypertransaminasaemia [Unknown]
  - Arthritis [Unknown]
  - Rash [Unknown]
  - Off label use [Unknown]
